FAERS Safety Report 7270979-1 (Version None)
Quarter: 2011Q1

REPORT INFORMATION
  Report Type: 
  Country: None (occurrence: None)
  Receive Date: 20110202
  Receipt Date: 20110126
  Transmission Date: 20110831
  Serious: Yes (Other)
  Sender: FDA-Public Use
  Company Number: MX-BAYER-2011-009337

PATIENT
  Age: 25 Year
  Sex: Female

DRUGS (2)
  1. YASMIN [Suspect]
     Indication: MENSTRUAL CYCLE MANAGEMENT
  2. YASMIN [Suspect]
     Indication: CONTRACEPTION
     Dosage: 3 MG, QD
     Dates: start: 20101105

REACTIONS (2)
  - VAGINAL HAEMORRHAGE [None]
  - ENDOMETRIAL HYPERTROPHY [None]
